FAERS Safety Report 13492834 (Version 28)
Quarter: 2019Q4

REPORT INFORMATION
  Report Type: Report from Study
  Country: CR (occurrence: CR)
  Receive Date: 20170427
  Receipt Date: 20191015
  Transmission Date: 20200122
  Serious: Yes (Hospitalization, Disabling, Other)
  Sender: FDA-Public Use
  Company Number: PHHY2015CR102611

PATIENT
  Age: 62 Year
  Sex: Male
  Weight: 70 kg

DRUGS (13)
  1. ATENOLOL. [Concomitant]
     Active Substance: ATENOLOL
     Indication: HYPERTENSION
     Dosage: 50 MG, QD
     Route: 065
  2. CALCIUM [Concomitant]
     Active Substance: CALCIUM
     Indication: NEPHROPATHY
     Dosage: 600 MG, QD
     Route: 065
  3. TASIGNA [Suspect]
     Active Substance: NILOTINIB
     Dosage: 200 MG, QD
     Route: 065
  4. TASIGNA [Suspect]
     Active Substance: NILOTINIB
     Dosage: 200 MG, BID (1 IN THE MORNING AND ONE AT NIGHT)
     Route: 065
     Dates: end: 20171030
  5. TASIGNA [Suspect]
     Active Substance: NILOTINIB
     Dosage: 200 MG, BID (1 IN THE MORNING AND ONE AT AFTERNOON)
     Route: 048
  6. TASIGNA [Suspect]
     Active Substance: NILOTINIB
     Indication: CHRONIC MYELOID LEUKAEMIA
     Dosage: 200 MG, (STARTED 10 YEARS AGO)
     Route: 065
  7. TASIGNA [Suspect]
     Active Substance: NILOTINIB
     Dosage: 2 DF, BID (5 IN AM AND 5 IN PM)
     Route: 065
  8. IRBESARTAN. [Suspect]
     Active Substance: IRBESARTAN
     Dosage: 300 MG, QD
     Route: 065
  9. IRBESARTAN. [Suspect]
     Active Substance: IRBESARTAN
     Indication: HYPERTENSION
     Dosage: 150 MG, QD
     Route: 048
  10. TASIGNA [Suspect]
     Active Substance: NILOTINIB
     Dosage: 400 MG, BID
     Route: 065
  11. IRBESARTAN. [Suspect]
     Active Substance: IRBESARTAN
     Dosage: 1 DF IN THE MORNING
     Route: 065
  12. TASIGNA [Suspect]
     Active Substance: NILOTINIB
     Dosage: 2 DF, BID (2 IN AM AND 2 IN PM)
     Route: 065
     Dates: start: 201401
  13. TASIGNA [Suspect]
     Active Substance: NILOTINIB
     Dosage: 400 MG, QD
     Route: 065

REACTIONS (39)
  - Haematemesis [Unknown]
  - Fatigue [Unknown]
  - Renal injury [Unknown]
  - Hypoaesthesia [Not Recovered/Not Resolved]
  - Anaemia [Unknown]
  - Muscular weakness [Recovering/Resolving]
  - Eating disorder [Unknown]
  - Renal failure [Recovering/Resolving]
  - Pain [Not Recovered/Not Resolved]
  - Vomiting [Unknown]
  - Device related infection [Unknown]
  - Malaise [Unknown]
  - Asthenia [Unknown]
  - Joint swelling [Unknown]
  - Incorrect product administration duration [Unknown]
  - Pain in extremity [Unknown]
  - Grip strength decreased [Unknown]
  - Poor quality sleep [Unknown]
  - Anxiety [Unknown]
  - Infection [Unknown]
  - Fluid retention [Unknown]
  - Peritonitis [Unknown]
  - Seizure [Unknown]
  - Arrhythmia [Recovering/Resolving]
  - Testicular swelling [Unknown]
  - Memory impairment [Unknown]
  - Cerebrovascular accident [Unknown]
  - Hemiparesis [Recovering/Resolving]
  - Loss of consciousness [Recovering/Resolving]
  - Limb injury [Unknown]
  - Peripheral swelling [Recovering/Resolving]
  - Gait disturbance [Recovering/Resolving]
  - Speech disorder [Unknown]
  - Depressed mood [Unknown]
  - Renal impairment [Recovering/Resolving]
  - Musculoskeletal pain [Unknown]
  - Gastric disorder [Unknown]
  - Weight decreased [Unknown]
  - Productive cough [Unknown]

NARRATIVE: CASE EVENT DATE: 201711
